FAERS Safety Report 24360817 (Version 4)
Quarter: 2025Q3

REPORT INFORMATION
  Report Type: Report from Study
  Country: CA (occurrence: CA)
  Receive Date: 20240925
  Receipt Date: 20250820
  Transmission Date: 20251020
  Serious: Yes (Hospitalization, Disabling, Other)
  Sender: CHIESI
  Company Number: CA-CHIESI-2024CHF06204

PATIENT
  Age: 55 Year
  Sex: Male
  Weight: 74 kg

DRUGS (3)
  1. DEFERIPRONE [Suspect]
     Active Substance: DEFERIPRONE
     Indication: Superficial siderosis of central nervous system
     Dosage: 500 MILLIGRAM, QID
     Route: 048
     Dates: start: 20160628, end: 202408
  2. DEFERIPRONE [Suspect]
     Active Substance: DEFERIPRONE
     Indication: Off label use
     Route: 048
     Dates: start: 202505
  3. MIRABEGRON [Concomitant]
     Active Substance: MIRABEGRON
     Indication: Product used for unknown indication

REACTIONS (22)
  - Deafness unilateral [Unknown]
  - Ear infection [Recovering/Resolving]
  - Bell^s palsy [Recovered/Resolved]
  - Sepsis [Recovering/Resolving]
  - COVID-19 [Recovered/Resolved]
  - COVID-19 [Unknown]
  - Temperature regulation disorder [Unknown]
  - Mobility decreased [Unknown]
  - Fungal infection [Unknown]
  - Miliaria [Unknown]
  - Rash [Unknown]
  - Blood iron decreased [Unknown]
  - Dyspnoea [Unknown]
  - Asthenia [Unknown]
  - Tinnitus [Unknown]
  - Asthenia [Unknown]
  - Dizziness [Unknown]
  - Hypotension [Unknown]
  - Infection [Unknown]
  - Asthenia [Unknown]
  - Off label use [Recovered/Resolved]
  - Off label use [Recovered/Resolved]

NARRATIVE: CASE EVENT DATE: 20160628
